FAERS Safety Report 10102436 (Version 2)
Quarter: 2014Q2

REPORT INFORMATION
  Report Type: Other
  Country: US (occurrence: US)
  Receive Date: 20140424
  Receipt Date: 20140628
  Transmission Date: 20141212
  Serious: Yes (Hospitalization, Other)
  Sender: FDA-Public Use
  Company Number: US-GSKPPD-2014GSK000305

PATIENT
  Age: 68 Year
  Sex: Male

DRUGS (8)
  1. AVANDIA [Suspect]
     Indication: DIABETES MELLITUS
     Dosage: AVANDIA WAS NOT LISTED AMONG THE PATIENTS DISCHARGE RECORDS.
     Route: 048
  2. AVANDAMET [Suspect]
     Indication: DIABETES MELLITUS
     Dates: end: 200911
  3. ASPIRIN [Concomitant]
     Dates: end: 200911
  4. PLAVIX [Concomitant]
  5. POTASSIUM CHLORIDE [Concomitant]
     Dates: end: 200911
  6. LASIX [Concomitant]
  7. LOPRESSOR [Concomitant]
  8. FUROSEMIDE [Concomitant]

REACTIONS (3)
  - Lacunar infarction [Unknown]
  - Transient ischaemic attack [Recovered/Resolved]
  - Cardiac failure congestive [Unknown]
